FAERS Safety Report 6204596-9 (Version None)
Quarter: 2009Q2

REPORT INFORMATION
  Report Type: 
  Country: None (occurrence: None)
  Receive Date: 20090527
  Receipt Date: 20090515
  Transmission Date: 20091009
  Serious: Yes (Hospitalization)
  Sender: FDA-Public Use
  Company Number: GB-SANOFI-SYNTHELABO-F01200900485

PATIENT
  Age: 74 Year
  Sex: Male

DRUGS (4)
  1. CETUXIMAB [Suspect]
     Dosage: UNK
     Route: 041
     Dates: start: 20080328, end: 20080328
  2. FLUOROURACIL [Suspect]
     Dosage: UNK
     Route: 041
     Dates: start: 20080328, end: 20080328
  3. FOLINIC ACID [Suspect]
     Dosage: UNK
     Route: 041
     Dates: start: 20080328, end: 20080328
  4. OXALIPLATIN [Suspect]
     Indication: COLORECTAL CANCER METASTATIC
     Route: 041
     Dates: start: 20080328, end: 20080328

REACTIONS (1)
  - GUILLAIN-BARRE SYNDROME [None]
